FAERS Safety Report 6196913-3 (Version None)
Quarter: 2009Q2

REPORT INFORMATION
  Report Type: 
  Country: None (occurrence: None)
  Receive Date: 20090518
  Receipt Date: 20090518
  Transmission Date: 20091009
  Serious: Yes (Life-Threatening, Hospitalization, Other)
  Sender: FDA-Public Use
  Company Number: None

PATIENT
  Sex: Female
  Weight: 73.9363 kg

DRUGS (3)
  1. PAROXETINE HCL [Suspect]
     Indication: DEPRESSION
     Dosage: 20 MG DAILY
     Dates: start: 19990101, end: 20090411
  2. PAROXETINE HCL [Suspect]
     Indication: PANIC DISORDER
     Dosage: 20 MG DAILY
     Dates: start: 19990101, end: 20090411
  3. NEFAZODONE HCL [Suspect]
     Indication: MAJOR DEPRESSION
     Dosage: 100 MG TWICE DAILY
     Dates: start: 19980101, end: 20090411

REACTIONS (20)
  - ARTHRALGIA [None]
  - BLOOD PRESSURE INCREASED [None]
  - BONE PAIN [None]
  - CONDITION AGGRAVATED [None]
  - DEPRESSION [None]
  - FEELING COLD [None]
  - HEADACHE [None]
  - HYPOAESTHESIA [None]
  - INDIFFERENCE [None]
  - MENSTRUAL DISORDER [None]
  - MUSCLE RIGIDITY [None]
  - MUSCLE SPASMS [None]
  - MUSCULAR WEAKNESS [None]
  - MUSCULOSKELETAL STIFFNESS [None]
  - MYALGIA [None]
  - PAIN [None]
  - PALPITATIONS [None]
  - RENAL PAIN [None]
  - SEROTONIN SYNDROME [None]
  - SOCIAL AVOIDANT BEHAVIOUR [None]
